FAERS Safety Report 16097468 (Version 1)
Quarter: 2019Q1

REPORT INFORMATION
  Report Type: Spontaneous
  Country: JP (occurrence: JP)
  Receive Date: 20190320
  Receipt Date: 20190320
  Transmission Date: 20190418
  Serious: Yes (Death)
  Sender: FDA-Public Use
  Company Number: JP-ASTRAZENECA-2019SE43409

PATIENT
  Age: 74 Year
  Sex: Male

DRUGS (4)
  1. TAGRISSO [Suspect]
     Active Substance: OSIMERTINIB
     Indication: NON-SMALL CELL LUNG CANCER
     Route: 048
     Dates: end: 20190228
  2. CIPROXAN [Concomitant]
     Active Substance: CIPROFLOXACIN
     Dosage: DOSE UNKNOWN
     Route: 065
  3. MEROPEN [Concomitant]
     Active Substance: MEROPENEM
     Dosage: DOSE UNKNOWN
     Route: 065
  4. AMIKAMYCIN [Concomitant]
     Active Substance: AMIKACIN SULFATE
     Dosage: DOSE UNKNOWN
     Route: 065

REACTIONS (1)
  - Lung disorder [Fatal]

NARRATIVE: CASE EVENT DATE: 20190228
